FAERS Safety Report 14226407 (Version 2)
Quarter: 2017Q4

REPORT INFORMATION
  Report Type: Spontaneous
  Country: US (occurrence: US)
  Receive Date: 20171127
  Receipt Date: 20171215
  Transmission Date: 20180321
  Serious: Yes (Other)
  Sender: FDA-Public Use
  Company Number: PHEH2017US037517

PATIENT
  Age: 80 Year
  Sex: Female

DRUGS (2)
  1. LAMISIL [Suspect]
     Active Substance: TERBINAFINE HYDROCHLORIDE
     Indication: BODY TINEA
     Dosage: UNK OT, BID FOR 7 DAYS
     Route: 065
  2. EVISTA [Concomitant]
     Active Substance: RALOXIFENE HYDROCHLORIDE
     Indication: BENIGN OVARIAN TUMOUR
     Dosage: 60 MG, QD
     Route: 065

REACTIONS (2)
  - Drug ineffective [Unknown]
  - Porokeratosis [Unknown]
